FAERS Safety Report 17898751 (Version 1)
Quarter: 2020Q2

REPORT INFORMATION
  Report Type: Spontaneous
  Country: US (occurrence: US)
  Receive Date: 20200616
  Receipt Date: 20200616
  Transmission Date: 20200714
  Serious: No
  Sender: FDA-Public Use
  Company Number: US-ALLERGAN-1950463US

PATIENT
  Sex: Male

DRUGS (3)
  1. CONDYLOX [Suspect]
     Active Substance: PODOFILOX
     Indication: SKIN PAPILLOMA
     Dosage: ONCE, SOMETIMES TWICE DAILY TO WARTS
     Route: 061
     Dates: start: 201906, end: 201908
  2. METHOTREXATE. [Concomitant]
     Active Substance: METHOTREXATE
     Indication: PSORIASIS
     Dosage: UNK, SINGLE
  3. COSENTYX [Concomitant]
     Active Substance: SECUKINUMAB
     Indication: PSORIASIS
     Dosage: 300 MG, Q MONTH
     Dates: start: 201910, end: 201910

REACTIONS (4)
  - Skin exfoliation [Not Recovered/Not Resolved]
  - Pain of skin [Not Recovered/Not Resolved]
  - Off label use [Unknown]
  - Erythema [Not Recovered/Not Resolved]

NARRATIVE: CASE EVENT DATE: 201907
